FAERS Safety Report 6445290-9 (Version None)
Quarter: 2009Q4

REPORT INFORMATION
  Report Type: 
  Country: None (occurrence: None)
  Receive Date: 20091118
  Receipt Date: 20091109
  Transmission Date: 20100525
  Serious: Yes (Life-Threatening)
  Sender: FDA-Public Use
  Company Number: GB-BAXTER-2009BH017313

PATIENT
  Age: 42 Year
  Sex: Female
  Weight: 61 kg

DRUGS (1)
  1. METRONIDAZOLE [Suspect]
     Indication: APPENDICITIS
     Route: 042
     Dates: start: 20091027, end: 20091028

REACTIONS (1)
  - ANAPHYLACTIC SHOCK [None]
